FAERS Safety Report 16748922 (Version 1)
Quarter: 2019Q3

REPORT INFORMATION
  Report Type: Spontaneous
  Country: US (occurrence: US)
  Receive Date: 20190828
  Receipt Date: 20190828
  Transmission Date: 20191005
  Serious: No
  Sender: FDA-Public Use
  Company Number: US-GLAXOSMITHKLINE-US2019151167

PATIENT
  Sex: Female

DRUGS (1)
  1. TRELEGY ELLIPTA [Suspect]
     Active Substance: FLUTICASONE FUROATE\UMECLIDINIUM BROMIDE\VILANTEROL TRIFENATATE
     Indication: CHRONIC OBSTRUCTIVE PULMONARY DISEASE
     Dosage: 1 PUFF(S), QD
     Route: 055
     Dates: start: 201902

REACTIONS (6)
  - Dyspnoea [Unknown]
  - Metamorphopsia [Unknown]
  - Muscle spasms [Unknown]
  - Drug ineffective [Unknown]
  - Eye pain [Unknown]
  - Myalgia [Unknown]

NARRATIVE: CASE EVENT DATE: 2019
